FAERS Safety Report 23362892 (Version 1)
Quarter: 2024Q1

REPORT INFORMATION
  Report Type: Spontaneous
  Country: US (occurrence: None)
  Receive Date: 20240103
  Receipt Date: 20240103
  Transmission Date: 20240410
  Serious: Yes (Other)
  Sender: FDA-Public Use
  Company Number: None

PATIENT
  Sex: Female

DRUGS (2)
  1. MENOPUR [Suspect]
     Active Substance: FOLLITROPIN\LUTEINIZING HORMONE
     Indication: Infertility
     Dosage: OTHER QUANTITY : 75 UNIT;?FREQUENCY : DAILY;?INJECT 225 UNITS UNDER THE SKIN (SUBCUTANEOUS INJECTION
     Route: 058
     Dates: start: 20240102
  2. MENOPUR [Suspect]
     Active Substance: FOLLITROPIN\LUTEINIZING HORMONE
     Dosage: OTHER QUANTITY : 225 UN ITS;?FREQUENCY : DAILY;?
     Route: 058

REACTIONS (1)
  - Breast cancer [None]
